FAERS Safety Report 4566308-4 (Version None)
Quarter: 2005Q1

REPORT INFORMATION
  Report Type: 
  Country: None (occurrence: None)
  Receive Date: 20050126
  Receipt Date: 20050126
  Transmission Date: 20050727
  Serious: Yes (Hospitalization, Disabling)
  Sender: FDA-Public Use
  Company Number: None

PATIENT
  Age: 56 Year
  Sex: Female

DRUGS (19)
  1. PREDNISONE [Suspect]
     Indication: SYSTEMIC LUPUS ERYTHEMATOSUS
     Dosage: 12MG  DAILY  ORAL
     Route: 048
  2. PREDNISOLONE [Suspect]
  3. OXYCODONE HCL [Concomitant]
  4. MULTI-VITAMIN [Concomitant]
  5. DOCUSATE SODIUM [Concomitant]
  6. MAGNESIUM GLUCONATE [Concomitant]
  7. LEVOTHYROXINE [Concomitant]
  8. BISOPROLOL FUMARATE [Concomitant]
  9. HYDROXYCHLOROQUINE SULFATE [Concomitant]
  10. SIMVASTATIN [Concomitant]
  11. AMILORIDE [Concomitant]
  12. ASCORBIC ACID SR [Concomitant]
  13. QUINACRINE [Concomitant]
  14. TRIAMTERENE AND HYDROCHLOROTHIAZIDE [Concomitant]
  15. POTASSIUM CHLORIDE [Concomitant]
  16. METAXALONE [Concomitant]
  17. SERTRALINE HCL [Concomitant]
  18. TRAZADONE [Concomitant]
  19. WARFARIN SODIUM [Concomitant]

REACTIONS (2)
  - OSTEOARTHRITIS [None]
  - OSTEOPOROSIS [None]
